FAERS Safety Report 8068139-X (Version None)
Quarter: 2012Q1

REPORT INFORMATION
  Report Type: 
  Country: None (occurrence: None)
  Receive Date: 20120124
  Receipt Date: 20110928
  Transmission Date: 20120608
  Serious: No
  Sender: FDA-Public Use
  Company Number: US-AMGEN-USASP2011034485

PATIENT
  Sex: Female

DRUGS (5)
  1. VITAMIN D [Concomitant]
  2. FENTANYL [Concomitant]
     Indication: BACK PAIN
  3. PROLIA [Suspect]
     Indication: OSTEOPOROSIS POSTMENOPAUSAL
     Dosage: UNK UNK, Q6MO
     Dates: start: 20110330
  4. METOPROLOL TARTRATE [Concomitant]
  5. ASCORBIC ACID [Concomitant]

REACTIONS (5)
  - TENDONITIS [None]
  - PAIN [None]
  - MUSCULOSKELETAL PAIN [None]
  - MYALGIA [None]
  - MUSCULOSKELETAL DISORDER [None]
